FAERS Safety Report 22323086 (Version 3)
Quarter: 2023Q2

REPORT INFORMATION
  Report Type: Spontaneous
  Country: US (occurrence: None)
  Receive Date: 20230516
  Receipt Date: 20230524
  Transmission Date: 20230721
  Serious: Yes (Hospitalization)
  Sender: FDA-Public Use
  Company Number: US-ROCHE-3349164

PATIENT
  Sex: Female

DRUGS (6)
  1. XOLAIR [Suspect]
     Active Substance: OMALIZUMAB
     Indication: Asthma
     Dosage: PATIENT REPORTED RECEIVING THE FOLLOWING DATES: MARCH/31/2023, APRIL/14TH/2023, AND 12/MAR/2023
     Route: 065
     Dates: start: 20230317
  2. DULERA [Concomitant]
     Active Substance: FORMOTEROL FUMARATE DIHYDRATE\MOMETASONE FUROATE
     Indication: Asthma
     Dosage: FOR A LONG TIME (15YEARS-EXACT DATE UNKNOWN BY REPORTER). SHE TAKES 2 PUFFS TWICE A DAY.?DOSE 200MCG
  3. NASACORT [Concomitant]
     Active Substance: TRIAMCINOLONE ACETONIDE
     Dates: start: 2016
  4. MONTELUKAST [Concomitant]
     Active Substance: MONTELUKAST SODIUM
     Indication: Asthma
  5. LEVALBUTEROL [Concomitant]
     Active Substance: LEVALBUTEROL
  6. XYZAL [Concomitant]
     Active Substance: LEVOCETIRIZINE DIHYDROCHLORIDE

REACTIONS (6)
  - Pneumonia [Unknown]
  - COVID-19 [Unknown]
  - Malaise [Unknown]
  - Malaise [Unknown]
  - Bronchitis chronic [Unknown]
  - Nasal polyps [Unknown]
